FAERS Safety Report 4732388-6 (Version None)
Quarter: 2005Q3

REPORT INFORMATION
  Report Type: 
  Country: None (occurrence: None)
  Receive Date: 20050721
  Receipt Date: 20050523
  Transmission Date: 20060218
  Serious: No
  Sender: FDA-Public Use
  Company Number: 2005SP000900

PATIENT
  Age: 33 Year
  Sex: Female
  Weight: 86.1834 kg

DRUGS (8)
  1. LUNESTA [Suspect]
     Indication: INSOMNIA
     Dosage: 3 MG;HS;ORAL
     Route: 048
     Dates: start: 20050503, end: 20050513
  2. SUMATRIPTAN SUCCINATE [Concomitant]
  3. PREMARIN [Concomitant]
  4. FLEXERIL [Concomitant]
  5. SYNTHROID [Concomitant]
  6. METHOCARBAMOL [Concomitant]
  7. PROPRANOLOL [Concomitant]
  8. AMBIEN [Concomitant]

REACTIONS (2)
  - DYSGEUSIA [None]
  - OEDEMA GENITAL [None]
